FAERS Safety Report 5512463-9 (Version None)
Quarter: 2007Q4

REPORT INFORMATION
  Report Type: 
  Country: None (occurrence: None)
  Receive Date: 20071112
  Receipt Date: 20070227
  Transmission Date: 20080405
  Serious: No
  Sender: FDA-Public Use
  Company Number: A0641166A

PATIENT
  Age: 55 Year
  Sex: Male

DRUGS (7)
  1. AVANDAMET [Suspect]
     Dosage: 2TAB TWICE PER DAY
     Route: 048
     Dates: start: 20070130
  2. TOPROL-XL [Concomitant]
  3. BENICAR HCT [Concomitant]
  4. ASPIRIN [Concomitant]
  5. VYTORIN [Concomitant]
  6. VITAMIN [Concomitant]
  7. NITROGLYCERIN [Concomitant]

REACTIONS (2)
  - DIZZINESS [None]
  - HEADACHE [None]
